FAERS Safety Report 4466940-2 (Version None)
Quarter: 2004Q4

REPORT INFORMATION
  Report Type: 
  Country: None (occurrence: None)
  Receive Date: 20041004
  Receipt Date: 20040930
  Transmission Date: 20050328
  Serious: Yes (Death)
  Sender: FDA-Public Use
  Company Number: 04-09-1362

PATIENT
  Age: 62 Year
  Sex: Male

DRUGS (1)
  1. CLOZAPINE [Suspect]
     Indication: SCHIZOPHRENIA
     Dosage: 75-375MG QD ORAL
     Route: 048
     Dates: start: 20010601, end: 20040810

REACTIONS (1)
  - METASTATIC NEOPLASM [None]
